FAERS Safety Report 4461995-3 (Version None)
Quarter: 2004Q3

REPORT INFORMATION
  Report Type: 
  Country: None (occurrence: None)
  Receive Date: 20040929
  Receipt Date: 20040923
  Transmission Date: 20050211
  Serious: Yes (Death, Other)
  Sender: FDA-Public Use
  Company Number: PHEH2004US10315

PATIENT
  Age: 64 Year
  Sex: Male

DRUGS (17)
  1. PAMIDRONATE DISODIUM [Suspect]
     Indication: MULTIPLE MYELOMA
     Dosage: 90 MG, QMO
  2. ZOMETA [Suspect]
     Indication: MULTIPLE MYELOMA
  3. VINCRISTINE + ADRIAMYCIN + DEXAMETHASONE [Concomitant]
  4. CYTOXAN [Concomitant]
  5. DEXAMETHASONE [Concomitant]
  6. ETOPOSIDE [Concomitant]
  7. CISPLATIN [Concomitant]
  8. WELLBUTRIN [Concomitant]
     Dosage: 100 MG, TID
  9. FLUOXETINE [Concomitant]
     Dosage: 40 MG, QD
  10. PREVACID [Concomitant]
     Dosage: 30 MG, QD
  11. ZOCOR [Concomitant]
     Dosage: 20 MG, QD
  12. OXYCONTIN [Concomitant]
     Dosage: 20 MG, Q12H
  13. VICODIN [Concomitant]
     Dosage: UNK, PRN
  14. THALIDOMIDE [Concomitant]
  15. PREDNISONE [Concomitant]
  16. REVIMID TRIAL [Concomitant]
  17. MELPHALAN [Concomitant]

REACTIONS (8)
  - BONE DISORDER [None]
  - DEATH [None]
  - DISEASE PROGRESSION [None]
  - GINGIVAL OPERATION [None]
  - MOUTH ULCERATION [None]
  - NEUROPATHY PERIPHERAL [None]
  - OSTEONECROSIS [None]
  - WOUND DEBRIDEMENT [None]
